FAERS Safety Report 19807726 (Version 5)
Quarter: 2021Q4

REPORT INFORMATION
  Report Type: Report from Study
  Country: US (occurrence: US)
  Receive Date: 20210908
  Receipt Date: 20211206
  Transmission Date: 20220303
  Serious: Yes (Hospitalization, Other)
  Sender: FDA-Public Use
  Company Number: US-PFIZER INC-2021746927

PATIENT
  Age: 63 Year
  Sex: Female

DRUGS (4)
  1. IBRANCE [Suspect]
     Active Substance: PALBOCICLIB
     Indication: Breast cancer female
     Dosage: 125 MG, DAILY FOR 21 DAYS ON, 7 DAYS OFF
     Route: 048
     Dates: start: 20210603
  2. FASLODEX [Suspect]
     Active Substance: FULVESTRANT
     Indication: Breast cancer female
     Dosage: UNK
  3. TRAZODONE [Concomitant]
     Active Substance: TRAZODONE HYDROCHLORIDE
     Dosage: UNK
  4. GAS-X [Concomitant]
     Active Substance: DIMETHICONE
     Dosage: UNK

REACTIONS (36)
  - Musculoskeletal disorder [Unknown]
  - Hallucination [Unknown]
  - Asthenia [Not Recovered/Not Resolved]
  - Fatigue [Recovering/Resolving]
  - Diarrhoea [Unknown]
  - Dry mouth [Not Recovered/Not Resolved]
  - Nausea [Not Recovered/Not Resolved]
  - Flatulence [Unknown]
  - Dysphagia [Unknown]
  - Constipation [Unknown]
  - Gingival bleeding [Recovered/Resolved]
  - Chapped lips [Not Recovered/Not Resolved]
  - Aphthous ulcer [Recovered/Resolved]
  - Epistaxis [Unknown]
  - Blood pressure increased [Unknown]
  - Blood glucose increased [Unknown]
  - Vomiting [Recovered/Resolved]
  - Hypersomnia [Not Recovered/Not Resolved]
  - Condition aggravated [Not Recovered/Not Resolved]
  - Muscular weakness [Unknown]
  - Dizziness [Unknown]
  - Memory impairment [Unknown]
  - Fall [Unknown]
  - Neoplasm progression [Unknown]
  - Dysuria [Unknown]
  - Urinary tract infection [Unknown]
  - Confusional state [Unknown]
  - Hypotension [Unknown]
  - Weight decreased [Unknown]
  - Abdominal discomfort [Not Recovered/Not Resolved]
  - Balance disorder [Unknown]
  - Swelling face [Unknown]
  - Nasal congestion [Unknown]
  - Cough [Unknown]
  - Sneezing [Unknown]
  - Contusion [Recovering/Resolving]

NARRATIVE: CASE EVENT DATE: 20210826
